FAERS Safety Report 4662889-0 (Version None)
Quarter: 2005Q2

REPORT INFORMATION
  Report Type: 
  Country: None (occurrence: None)
  Receive Date: 20050511
  Receipt Date: 20050407
  Transmission Date: 20051028
  Serious: Yes (Other)
  Sender: FDA-Public Use
  Company Number: 401434

PATIENT
  Age: 52 Year
  Sex: Female
  Weight: 55.8 kg

DRUGS (9)
  1. PEGASYS [Suspect]
     Indication: HEPATITIS C
     Dosage: 180 MCG 1 PER WEEK, SUBCUTANEOUS
     Route: 058
     Dates: start: 20050224
  2. COPEGUS [Suspect]
     Indication: HEPATITIS C
     Dosage: 1000 MG DAILY, ORAL
     Route: 048
     Dates: start: 20050224
  3. CELEBREX [Concomitant]
  4. TRAMADOL HCL [Concomitant]
  5. AMBIEN [Concomitant]
  6. TEMAZEPAM [Concomitant]
  7. COMPAZINE [Concomitant]
  8. MORPHINE [Concomitant]
  9. BENADRYL [Concomitant]

REACTIONS (9)
  - DEPRESSION [None]
  - DYSPNOEA [None]
  - FATIGUE [None]
  - HEADACHE [None]
  - INSOMNIA [None]
  - NAUSEA [None]
  - RASH [None]
  - SUICIDAL IDEATION [None]
  - WEIGHT DECREASED [None]
